FAERS Safety Report 17309040 (Version 5)
Quarter: 2020Q1

REPORT INFORMATION
  Report Type: Spontaneous
  Country: JP (occurrence: JP)
  Receive Date: 20200123
  Receipt Date: 20200327
  Transmission Date: 20200409
  Serious: Yes (Hospitalization, Disabling, Other)
  Sender: FDA-Public Use
  Company Number: JP-TAKEDA-2020TUS004274

PATIENT
  Age: 79 Year
  Sex: Male

DRUGS (4)
  1. PONATINIB [Suspect]
     Active Substance: PONATINIB
     Indication: ACUTE MYELOID LEUKAEMIA
  2. PONATINIB [Suspect]
     Active Substance: PONATINIB
     Indication: PHILADELPHIA CHROMOSOME POSITIVE
     Dosage: 15 MILLIGRAM, QD
     Route: 048
     Dates: start: 20190128, end: 20191113
  3. BAYASPIRIN [Concomitant]
     Active Substance: ASPIRIN
     Indication: CEREBRAL INFARCTION
     Dosage: 100 MILLIGRAM, QD
     Route: 048
     Dates: start: 20190128, end: 20191203
  4. FEBURIC [Concomitant]
     Active Substance: FEBUXOSTAT
     Indication: PRODUCT USED FOR UNKNOWN INDICATION
     Dosage: 20 MILLIGRAM, QD
     Route: 048
     Dates: start: 20190312

REACTIONS (1)
  - Cerebral infarction [Recovered/Resolved with Sequelae]

NARRATIVE: CASE EVENT DATE: 20191113
